FAERS Safety Report 9887259 (Version 1)
Quarter: 2014Q1

REPORT INFORMATION
  Report Type: Spontaneous
  Country: US (occurrence: US)
  Receive Date: 20140211
  Receipt Date: 20140211
  Transmission Date: 20141002
  Serious: No
  Sender: FDA-Public Use
  Company Number: US-BIOGENIDEC-2014BI010422

PATIENT
  Sex: Female
  Weight: 77 kg

DRUGS (8)
  1. TECFIDERA [Suspect]
     Indication: PRODUCT USED FOR UNKNOWN INDICATION
  2. AMPYRA [Concomitant]
     Indication: GAIT DISTURBANCE
     Route: 048
     Dates: start: 2013
  3. BACLOFEN [Concomitant]
  4. ACETAZOLAMIDE [Concomitant]
  5. ZOLOFT [Concomitant]
  6. RANITIDINE HYDROCHLORIDE [Concomitant]
  7. VALACYCLOVIR HYDROCHLORIDE [Concomitant]
  8. ATORVASTATIN [Concomitant]

REACTIONS (2)
  - Gait disturbance [Not Recovered/Not Resolved]
  - Multiple sclerosis relapse [Unknown]
